FAERS Safety Report 16678564 (Version 1)
Quarter: 2019Q3

REPORT INFORMATION
  Report Type: Spontaneous
  Country: US (occurrence: US)
  Receive Date: 20190806
  Receipt Date: 20190806
  Transmission Date: 20191004
  Serious: Yes (Disabling)
  Sender: FDA-Public Use
  Company Number: None

PATIENT
  Sex: Male
  Weight: 122.4 kg

DRUGS (11)
  1. PRALUENT [Suspect]
     Active Substance: ALIROCUMAB
     Indication: BLOOD CHOLESTEROL
     Dosage: ?          QUANTITY:2 PEN;OTHER FREQUENCY:Q2W;OTHER ROUTE:SUBQ?           THERAPY ONGOING: Y
     Route: 058
     Dates: start: 20190701, end: 20190729
  2. ASPIRIN. [Concomitant]
     Active Substance: ASPIRIN
  3. ENALAPRIL MALEATE. [Concomitant]
     Active Substance: ENALAPRIL MALEATE
  4. METOPROLOL. [Concomitant]
     Active Substance: METOPROLOL
  5. COENZYME Q10 [Concomitant]
     Active Substance: UBIDECARENONE
  6. VITAMIN B12 [Concomitant]
     Active Substance: CYANOCOBALAMIN
  7. FISH OIL OMEGA-3 [Concomitant]
  8. LECITHIN [Concomitant]
     Active Substance: LECITHIN
  9. METFORMIN [Concomitant]
     Active Substance: METFORMIN HYDROCHLORIDE
  10. VITAMIN D3 [Concomitant]
     Active Substance: CHOLECALCIFEROL
  11. ALPHA-LIPOIC AICD [Concomitant]

REACTIONS (14)
  - Asthenia [None]
  - Memory impairment [None]
  - Aphasia [None]
  - Balance disorder [None]
  - Hypoaesthesia [None]
  - Headache [None]
  - Pain in extremity [None]
  - Micturition urgency [None]
  - Back pain [None]
  - Flank pain [None]
  - Gait disturbance [None]
  - Arthralgia [None]
  - Acne [None]
  - Rhinorrhoea [None]
